FAERS Safety Report 18788971 (Version 3)
Quarter: 2021Q2

REPORT INFORMATION
  Report Type: Report from Study
  Country: BE (occurrence: BE)
  Receive Date: 20210126
  Receipt Date: 20210416
  Transmission Date: 20210717
  Serious: Yes (Death, Hospitalization)
  Sender: FDA-Public Use
  Company Number: BE-ROCHE-2757004

PATIENT
  Age: 32 Year
  Sex: Male
  Weight: 65 kg

DRUGS (7)
  1. XL184 [Suspect]
     Active Substance: CABOZANTINIB
     Indication: HEPATOCELLULAR CARCINOMA
     Dosage: ON 10/JUN/2020, HE RECEIVED THE MOST RECENT DOSE OF CABOZANTINIB PRIOR TO THE EVENT.
     Route: 048
     Dates: start: 20191003, end: 20200610
  2. METOPROLOL. [Concomitant]
     Active Substance: METOPROLOL
  3. IMODIUM [Concomitant]
     Active Substance: LOPERAMIDE HYDROCHLORIDE
  4. AMLOR [Concomitant]
     Active Substance: AMLODIPINE BESYLATE
  5. ATEZOLIZUMAB. [Suspect]
     Active Substance: ATEZOLIZUMAB
     Indication: HEPATOCELLULAR CARCINOMA
     Dosage: 20/MAY/2020 RECEIVED THE MOST RECENT DOSE PRIOR TO EVENT
     Route: 042
     Dates: start: 20191003, end: 20200608
  6. LASIX [Concomitant]
     Active Substance: FUROSEMIDE
  7. VIREAD [Concomitant]
     Active Substance: TENOFOVIR DISOPROXIL FUMARATE

REACTIONS (1)
  - Hepatocellular carcinoma [Fatal]

NARRATIVE: CASE EVENT DATE: 20200818
